FAERS Safety Report 5029307-4 (Version None)
Quarter: 2006Q2

REPORT INFORMATION
  Report Type: 
  Country: None (occurrence: None)
  Receive Date: 20060616
  Receipt Date: 20060616
  Transmission Date: 20061013
  Serious: Yes (Hospitalization)
  Sender: FDA-Public Use
  Company Number: None

PATIENT
  Age: 52 Year
  Sex: Male
  Weight: 94.3 kg

DRUGS (1)
  1. DIAZEPAM [Suspect]
     Dosage: 130 MG ONCE PO
     Route: 048
     Dates: start: 20060530

REACTIONS (5)
  - CHEST PAIN [None]
  - DEPRESSIVE SYMPTOM [None]
  - INTENTIONAL OVERDOSE [None]
  - SUICIDAL BEHAVIOUR [None]
  - TREATMENT NONCOMPLIANCE [None]
